FAERS Safety Report 9892211 (Version 1)
Quarter: 2014Q1

REPORT INFORMATION
  Report Type: Spontaneous
  Country: MX (occurrence: MX)
  Receive Date: 20140212
  Receipt Date: 20140212
  Transmission Date: 20141002
  Serious: Yes (Other)
  Sender: FDA-Public Use
  Company Number: PHHY2014MX017258

PATIENT
  Age: 67 Year
  Sex: Female

DRUGS (2)
  1. CO-DIOVAN [Suspect]
     Indication: HYPERTENSION
     Dosage: 1 DF(80/12.5MG), DAILY
     Route: 048
  2. VALSARTAN [Concomitant]
     Dosage: 1 UKN, DAILY

REACTIONS (1)
  - Deafness bilateral [Unknown]
